FAERS Safety Report 15937431 (Version 1)
Quarter: 2019Q1

REPORT INFORMATION
  Report Type: Other
  Country: NL (occurrence: NL)
  Receive Date: 20190208
  Receipt Date: 20190208
  Transmission Date: 20190417
  Serious: Yes (Death, Other)
  Sender: FDA-Public Use
  Company Number: NL-ASPEN-GLO2019NL001021

PATIENT
  Age: 55 Year
  Sex: Male

DRUGS (2)
  1. DEXAMETHASONE SODIUM PHOSPHATE. [Suspect]
     Active Substance: DEXAMETHASONE SODIUM PHOSPHATE
     Dosage: 8 MG, QD. ALTERNATING DOSES OF DEXAMETHASONE FOR SIX WEEKS.
     Route: 065
  2. DEXAMETHASONE SODIUM PHOSPHATE. [Suspect]
     Active Substance: DEXAMETHASONE SODIUM PHOSPHATE
     Indication: BRAIN NEOPLASM
     Dosage: ALTERNATING DOSES
     Route: 065

REACTIONS (2)
  - Strongyloidiasis [Fatal]
  - Pneumocystis jirovecii pneumonia [Fatal]
